FAERS Safety Report 12447322 (Version 2)
Quarter: 2016Q2

REPORT INFORMATION
  Report Type: Report from Study
  Country: US (occurrence: US)
  Receive Date: 20160608
  Receipt Date: 20160610
  Transmission Date: 20160815
  Serious: Yes (Death, Hospitalization)
  Sender: FDA-Public Use
  Company Number: US-PFIZER INC-2016287249

PATIENT
  Age: 13 Year
  Sex: Female
  Weight: 38.5 kg

DRUGS (14)
  1. GRANULOCYTE MACROPHAGE COLONY STIM FACTOR [Suspect]
     Active Substance: GRANULOCYTE-MACROPHAGE COLONY-STIMULATING FACTOR
     Indication: NEUROBLASTOMA
     Dosage: 250 UG/M2, SQ OR IV OVER TWO HOURS ON DAYS 6-12
  2. SCOPOLAMINE /00008701/ [Concomitant]
     Active Substance: SCOPOLAMINE
     Dosage: UNK
  3. POTASSIUM PHOSPHATE [Concomitant]
     Active Substance: POTASSIUM PHOSPHATE
     Dosage: UNK
  4. DIFLUCAN [Concomitant]
     Active Substance: FLUCONAZOLE
     Dosage: UNK
  5. BICITRA /00586801/ [Concomitant]
     Dosage: UNK
     Route: 048
  6. MEGACE [Concomitant]
     Active Substance: MEGESTROL ACETATE
  7. IRINOTECAN HCL [Suspect]
     Active Substance: IRINOTECAN HYDROCHLORIDE
     Indication: NEUROBLASTOMA
     Dosage: 50 MG/M2, OVER 90 MINUTES ON DAYS 1-5
     Route: 041
  8. TYLENOL WITH CODEINE [Concomitant]
     Active Substance: ACETAMINOPHEN\CODEINE PHOSPHATE
     Dosage: UNK
  9. NEURONTIN [Concomitant]
     Active Substance: GABAPENTIN
     Dosage: UNK
  10. TEMOZOLOMIDE. [Suspect]
     Active Substance: TEMOZOLOMIDE
     Indication: NEUROBLASTOMA
     Dosage: 100 MG/M2, ON DAYS 1-5 (MAX DOSE= 200 MG)
     Route: 048
  11. DINUTUXIMAB [Suspect]
     Active Substance: DINUTUXIMAB
     Dosage: 17.5 MG/M2, QID OVER 10-20 HOURS ON DAYS 2-5
     Route: 041
     Dates: start: 20160318, end: 20160321
  12. DINUTUXIMAB [Suspect]
     Active Substance: DINUTUXIMAB
     Indication: NEUROBLASTOMA
     Dosage: 17.5 MG/M2, FOUR TIMES A DAY (QID) OVER 10-20 HOURS ON DAYS 2-5
     Route: 042
     Dates: start: 20150121
  13. ZOFRAN [Concomitant]
     Active Substance: ONDANSETRON HYDROCHLORIDE
     Dosage: UNK
  14. FLAGYL [Concomitant]
     Active Substance: METRONIDAZOLE\METRONIDAZOLE HYDROCHLORIDE
     Dosage: UNK

REACTIONS (10)
  - Metabolic disorder [Fatal]
  - Lethargy [Unknown]
  - Syncope [Unknown]
  - Dyspnoea [Unknown]
  - Hypotension [Unknown]
  - Death [Fatal]
  - Cardiac arrest [Fatal]
  - Respiratory arrest [Fatal]
  - Vision blurred [Unknown]
  - Headache [Unknown]

NARRATIVE: CASE EVENT DATE: 201603
